FAERS Safety Report 9746718 (Version 4)
Quarter: 2013Q4

REPORT INFORMATION
  Report Type: Spontaneous
  Country: US (occurrence: US)
  Receive Date: 20131211
  Receipt Date: 20131231
  Transmission Date: 20140711
  Serious: Yes (Hospitalization, Other)
  Sender: FDA-Public Use
  Company Number: US-PFIZER INC-2013352322

PATIENT
  Age: 76 Year
  Sex: Male
  Weight: 89.8 kg

DRUGS (23)
  1. ATENOLOL [Suspect]
     Dosage: 50 MG, UNK
     Route: 048
  2. OXYCODONE HYDROCHLORIDE [Suspect]
     Dosage: UNK
     Route: 065
  3. SYMBICORT [Suspect]
     Indication: ASTHMA
     Dosage: 640/4.5 UG, 2X/DAY
     Route: 055
     Dates: end: 2010
  4. SYMBICORT [Suspect]
     Indication: CHRONIC OBSTRUCTIVE PULMONARY DISEASE
     Dosage: 160/4.5, 2 PUFFS, 2X/DAY
     Route: 055
     Dates: end: 2010
  5. SYMBICORT [Suspect]
     Dosage: 160/4.5, 2 PUFFS, 2X/DAY
     Route: 055
  6. NEXIUM [Suspect]
     Indication: GASTROOESOPHAGEAL REFLUX DISEASE
     Dosage: 40 MG, DAILY
     Route: 048
  7. CRESTOR [Suspect]
     Indication: BLOOD CHOLESTEROL
     Dosage: 10 MG, 1X/DAY, BED TIME
     Route: 048
  8. ATROVENT [Concomitant]
     Indication: ASTHMA
     Dosage: 2 DF, 3X/DAY
     Route: 055
  9. ATROVENT [Concomitant]
     Indication: CHRONIC OBSTRUCTIVE PULMONARY DISEASE
  10. METFORMIN [Concomitant]
     Indication: BLOOD GLUCOSE ABNORMAL
     Dosage: UNK
     Route: 065
  11. ACTOS [Concomitant]
     Indication: DIABETES MELLITUS
     Dosage: UNK
     Route: 065
  12. GLYBURIDE [Concomitant]
     Dosage: UNK
     Route: 065
  13. CLORAZEPATE [Concomitant]
     Indication: DEPRESSION
     Dosage: UNK
     Route: 065
  14. PRIDOL [Concomitant]
     Dosage: 50 MG, UNK
     Route: 065
  15. TOVIAZ [Concomitant]
     Indication: URINE ANALYSIS ABNORMAL
     Dosage: 1 DF, 1X/DAY, EVERY MORNING
     Route: 065
  16. AVODART [Concomitant]
     Dosage: 0.5 DF, UNK
     Route: 065
  17. ALLOPURINOL [Concomitant]
     Dosage: 30 MG, UNK
     Route: 065
  18. METHADONE [Concomitant]
     Indication: PAIN
     Dosage: 5 MG, UNK
     Route: 065
  19. METHADONE [Concomitant]
     Indication: DRUG DEPENDENCE
  20. PAXIL [Concomitant]
     Dosage: 40 MG, 2X/DAY
     Route: 065
  21. XANAX [Concomitant]
     Indication: DEPRESSION
     Dosage: 1 MG, 2X/DAY
     Route: 065
  22. XANAX [Concomitant]
     Indication: NERVOUSNESS
  23. VITAMIN D [Concomitant]
     Dosage: UNK
     Route: 065

REACTIONS (9)
  - Rib fracture [Unknown]
  - Oesophageal injury [Unknown]
  - Renal failure [Unknown]
  - Drug dependence [Unknown]
  - Fall [Unknown]
  - Swelling face [Unknown]
  - Increased upper airway secretion [Unknown]
  - Gastrooesophageal reflux disease [Unknown]
  - Blood cholesterol abnormal [Unknown]
